FAERS Safety Report 18191831 (Version 1)
Quarter: 2020Q3

REPORT INFORMATION
  Report Type: Report from Study
  Country: GB (occurrence: GB)
  Receive Date: 20200825
  Receipt Date: 20200825
  Transmission Date: 20201103
  Serious: Yes (Other)
  Sender: FDA-Public Use
  Company Number: NVSC2020GB229662

PATIENT
  Sex: Female

DRUGS (3)
  1. DABRAFENIB [Suspect]
     Active Substance: DABRAFENIB
     Dosage: 110 MG, BID (DISPERCEBALE TABLET)
     Route: 065
  2. DABRAFENIB [Suspect]
     Active Substance: DABRAFENIB
     Indication: GANGLIOGLIOMA
     Dosage: 120 MG, BID
     Route: 065
  3. TRAMETINIB [Suspect]
     Active Substance: TRAMETINIB
     Indication: GANGLIOGLIOMA
     Dosage: UNK
     Route: 065

REACTIONS (2)
  - Syncope [Unknown]
  - Trigeminal nerve disorder [Unknown]
